FAERS Safety Report 19498688 (Version 4)
Quarter: 2021Q3

REPORT INFORMATION
  Report Type: Spontaneous
  Country: JP (occurrence: JP)
  Receive Date: 20210706
  Receipt Date: 20210914
  Transmission Date: 20211014
  Serious: Yes (Hospitalization, Other)
  Sender: FDA-Public Use
  Company Number: JP-ALLERGAN-2124617US

PATIENT
  Sex: Female
  Weight: 54 kg

DRUGS (23)
  1. ALFAROL [Concomitant]
     Active Substance: ALFACALCIDOL
     Dosage: UNK
  2. MOHRUS L [Concomitant]
     Active Substance: KETOPROFEN
     Dosage: UNK
     Dates: start: 20171227
  3. LASIX + K [Concomitant]
     Active Substance: FUROSEMIDE\POTASSIUM CHLORIDE
     Dosage: UNK
  4. TARLIGE [Suspect]
     Active Substance: MIROGABALIN BESYLATE
     Indication: LUMBAR SPINAL STENOSIS
     Dosage: 5 MG, BID
     Dates: start: 202104
  5. ADALAT [Concomitant]
     Active Substance: NIFEDIPINE
     Dosage: UNK
  6. OLMETEC [Concomitant]
     Active Substance: OLMESARTAN MEDOXOMIL
     Dosage: UNK
  7. BELSOMRA [Concomitant]
     Active Substance: SUVOREXANT
     Dosage: UNK
  8. LUNESTA [Concomitant]
     Active Substance: ESZOPICLONE
     Dosage: UNK
  9. NEUROTROPIN [RABBIT VACCINIA EXTRACT] [Concomitant]
     Active Substance: ORYCTOLAGUS CUNICULUS SKIN
     Dosage: UNK
     Dates: start: 20101208
  10. MEMANTINE HCL ? BP [Suspect]
     Active Substance: MEMANTINE
     Dosage: 5 MG, QD
     Route: 048
     Dates: start: 20210608, end: 20210614
  11. LANSOPRAZOLE. [Concomitant]
     Active Substance: LANSOPRAZOLE
     Dosage: UNK
  12. METHYCOBAL [Concomitant]
     Active Substance: METHYLCOBALAMIN
     Dosage: UNK
     Dates: start: 20210518
  13. DEPAS [DICLOFENAC;DICYCLOVERINE HYDROCHLORIDE] [Concomitant]
     Dosage: UNK
  14. GOSHAJINKIGAN [Concomitant]
     Active Substance: HERBALS
     Dosage: UNK
     Dates: start: 20140318
  15. MEMANTINE HCL ? BP [Suspect]
     Active Substance: MEMANTINE
     Indication: DEMENTIA ALZHEIMER^S TYPE
     Dosage: 15 MG, QD
     Route: 048
     Dates: start: 20210622, end: 20210622
  16. BABY ASPIRIN [Concomitant]
     Active Substance: ASPIRIN
     Dosage: UNK
  17. MEMANTINE HCL ? BP [Suspect]
     Active Substance: MEMANTINE
     Dosage: 10 MG, QD
     Route: 048
     Dates: start: 20210615, end: 20210621
  18. TARLIGE [Suspect]
     Active Substance: MIROGABALIN BESYLATE
     Dosage: 2.5 MG, BID
     Route: 048
     Dates: start: 20210330, end: 202104
  19. LIVALO [Concomitant]
     Active Substance: PITAVASTATIN CALCIUM
     Dosage: UNK
  20. ITOROL [Concomitant]
     Active Substance: ISOSORBIDE MONONITRATE
     Dosage: UNK
  21. LIPIDIL [Concomitant]
     Active Substance: FENOFIBRATE
     Dosage: UNK
  22. CALONAL [Concomitant]
     Active Substance: ACETAMINOPHEN
     Dosage: UNK
     Dates: start: 20171128
  23. FELBINAC [Concomitant]
     Active Substance: FELBINAC
     Dosage: UNK
     Dates: start: 20210330

REACTIONS (2)
  - Renal impairment [Unknown]
  - Hypoglycaemia [Recovered/Resolved]

NARRATIVE: CASE EVENT DATE: 20210623
